FAERS Safety Report 6347046-4 (Version None)
Quarter: 2009Q3

REPORT INFORMATION
  Report Type: 
  Country: None (occurrence: None)
  Receive Date: 20090909
  Receipt Date: 20090909
  Transmission Date: 20100115
  Serious: No
  Sender: FDA-Public Use
  Company Number: None

PATIENT
  Age: 60 Year
  Sex: Female

DRUGS (1)
  1. ESTRING [Suspect]
     Indication: OESTROGEN REPLACEMENT THERAPY
     Dosage: PLACE HIGH IN VAGINA AND CHANGE IN 90 DAYS
     Dates: start: 20090630, end: 20090726

REACTIONS (1)
  - DYSGEUSIA [None]
